FAERS Safety Report 10653746 (Version 34)
Quarter: 2018Q1

REPORT INFORMATION
  Report Type: Spontaneous
  Country: CA (occurrence: CA)
  Receive Date: 20141216
  Receipt Date: 20180326
  Transmission Date: 20180508
  Serious: Yes (Hospitalization, Other)
  Sender: FDA-Public Use
  Company Number: CA-ROCHE-1508095

PATIENT
  Age: 60 Year
  Sex: Female
  Weight: 92 kg

DRUGS (22)
  1. XOLAIR [Suspect]
     Active Substance: OMALIZUMAB
     Route: 058
     Dates: start: 20161026
  2. XOLAIR [Suspect]
     Active Substance: OMALIZUMAB
     Route: 058
     Dates: start: 20160711
  3. XOLAIR [Suspect]
     Active Substance: OMALIZUMAB
     Route: 058
     Dates: start: 20160808
  4. ADVAIR HFA [Suspect]
     Active Substance: FLUTICASONE PROPIONATE\SALMETEROL XINAFOATE
     Indication: ASTHMA
     Dosage: 125 MCG 1 PUFF IN THE MORNING AND ONCE
     Route: 065
  5. XOLAIR [Suspect]
     Active Substance: OMALIZUMAB
     Route: 058
     Dates: start: 20150825
  6. XOLAIR [Suspect]
     Active Substance: OMALIZUMAB
     Route: 058
     Dates: start: 20171013
  7. XOLAIR [Suspect]
     Active Substance: OMALIZUMAB
     Route: 058
     Dates: start: 20180215
  8. XOLAIR [Suspect]
     Active Substance: OMALIZUMAB
     Route: 058
     Dates: start: 20160316
  9. XOLAIR [Suspect]
     Active Substance: OMALIZUMAB
     Route: 058
     Dates: start: 20160419
  10. XOLAIR [Suspect]
     Active Substance: OMALIZUMAB
     Route: 058
     Dates: start: 20160608
  11. XOLAIR [Suspect]
     Active Substance: OMALIZUMAB
     Indication: ASTHMA
     Route: 058
     Dates: start: 20141105
  12. XOLAIR [Suspect]
     Active Substance: OMALIZUMAB
     Route: 058
     Dates: start: 20160511
  13. XOLAIR [Suspect]
     Active Substance: OMALIZUMAB
     Route: 058
     Dates: start: 20170912
  14. XOLAIR [Suspect]
     Active Substance: OMALIZUMAB
     Route: 058
     Dates: start: 20150303
  15. XOLAIR [Suspect]
     Active Substance: OMALIZUMAB
     Route: 058
  16. XOLAIR [Suspect]
     Active Substance: OMALIZUMAB
     Route: 058
     Dates: start: 20160714
  17. XOLAIR [Suspect]
     Active Substance: OMALIZUMAB
     Route: 058
     Dates: start: 20160928
  18. XOLAIR [Suspect]
     Active Substance: OMALIZUMAB
     Route: 058
     Dates: start: 20160119
  19. XOLAIR [Suspect]
     Active Substance: OMALIZUMAB
     Route: 058
     Dates: start: 20170124
  20. XOLAIR [Suspect]
     Active Substance: OMALIZUMAB
     Route: 058
     Dates: start: 20170224
  21. XOLAIR [Suspect]
     Active Substance: OMALIZUMAB
     Route: 058
     Dates: start: 20170718
  22. ADVAIR HFA [Suspect]
     Active Substance: FLUTICASONE PROPIONATE\SALMETEROL XINAFOATE
     Dosage: QUARTER OF HER ADVAIR DOSE
     Route: 065
     Dates: start: 201504

REACTIONS (41)
  - Body temperature decreased [Unknown]
  - Somnolence [Unknown]
  - Influenza [Unknown]
  - Nasal discomfort [Unknown]
  - Nervous system disorder [Unknown]
  - Hypoaesthesia [Recovering/Resolving]
  - Arthralgia [Unknown]
  - Rhinorrhoea [Unknown]
  - Hypoventilation [Unknown]
  - Influenza like illness [Unknown]
  - Dizziness [Recovering/Resolving]
  - Speech disorder [Unknown]
  - Immune system disorder [Unknown]
  - Paraesthesia [Recovering/Resolving]
  - Fatigue [Not Recovered/Not Resolved]
  - Feeling hot [Unknown]
  - Decreased appetite [Unknown]
  - Mood swings [Unknown]
  - Stress [Unknown]
  - Abdominal pain [Unknown]
  - Oxygen saturation decreased [Unknown]
  - Gait disturbance [Recovering/Resolving]
  - Weight increased [Unknown]
  - Malaise [Unknown]
  - Hormone level abnormal [Unknown]
  - Cortisol decreased [Recovering/Resolving]
  - Weight decreased [Unknown]
  - Wheezing [Unknown]
  - Cortisol increased [Unknown]
  - Muscle spasms [Unknown]
  - Pyrexia [Unknown]
  - Abdominal pain upper [Unknown]
  - Hot flush [Unknown]
  - Fluid retention [Unknown]
  - Sinus disorder [Unknown]
  - Asthma [Recovering/Resolving]
  - Chest discomfort [Unknown]
  - Diarrhoea [Unknown]
  - Feeling abnormal [Unknown]
  - Food allergy [Unknown]
  - Headache [Unknown]

NARRATIVE: CASE EVENT DATE: 20141105
